FAERS Safety Report 23062443 (Version 1)
Quarter: 2023Q4

REPORT INFORMATION
  Report Type: Spontaneous
  Country: US (occurrence: US)
  Receive Date: 20231013
  Receipt Date: 20231013
  Transmission Date: 20240109
  Serious: No
  Sender: FDA-Public Use
  Company Number: US-BIOGEN-2023BI01230664

PATIENT
  Sex: Female

DRUGS (22)
  1. AVONEX PEN [Suspect]
     Active Substance: INTERFERON BETA-1A
     Indication: Multiple sclerosis
     Dosage: INJECT 30 MCG (1 PEN) INTRAMUSCULARLY ONCE WEEKLY
     Route: 050
  2. AVONEX PEN [Suspect]
     Active Substance: INTERFERON BETA-1A
  3. AVONEX PEN [Suspect]
     Active Substance: INTERFERON BETA-1A
  4. AVONEX PEN [Suspect]
     Active Substance: INTERFERON BETA-1A
  5. HYOSCYAMINE SULFATE [Concomitant]
     Active Substance: HYOSCYAMINE SULFATE
     Route: 050
  6. ESTRADIOL [Concomitant]
     Active Substance: ESTRADIOL
     Route: 050
  7. LINZESS [Concomitant]
     Active Substance: LINACLOTIDE
     Route: 050
  8. POLYETHYLENE GLYCOL 3350 [Concomitant]
     Active Substance: POLYETHYLENE GLYCOL 3350
     Route: 050
  9. VITAMIN D3 [Concomitant]
     Active Substance: CHOLECALCIFEROL
     Route: 050
  10. VITAMIN B12 [Concomitant]
     Active Substance: CYANOCOBALAMIN
     Route: 050
  11. XIFAXAN [Concomitant]
     Active Substance: RIFAXIMIN
     Route: 050
  12. PROVIGIL [Concomitant]
     Active Substance: MODAFINIL
     Route: 050
  13. GABAPENTIN [Concomitant]
     Active Substance: GABAPENTIN
     Route: 050
  14. SYNTHROID [Concomitant]
     Active Substance: LEVOTHYROXINE SODIUM
     Route: 050
  15. LASIX [Concomitant]
     Active Substance: FUROSEMIDE
     Route: 050
  16. MEDROL [Concomitant]
     Active Substance: METHYLPREDNISOLONE
     Route: 050
  17. SOLIFENACIN SUCCINATE [Concomitant]
     Active Substance: SOLIFENACIN SUCCINATE
     Route: 050
  18. SUCRALFATE [Concomitant]
     Active Substance: SUCRALFATE
     Route: 050
  19. FINASTERIDE [Concomitant]
     Active Substance: FINASTERIDE
     Route: 050
  20. OMEPRAZOLE [Concomitant]
     Active Substance: OMEPRAZOLE
     Route: 050
  21. TYLENOL [Concomitant]
     Active Substance: ACETAMINOPHEN
     Route: 050
  22. ARTHRITIS PAIN [Concomitant]
     Route: 050

REACTIONS (2)
  - Pyrexia [Unknown]
  - Asthma [Unknown]
